FAERS Safety Report 24848958 (Version 2)
Quarter: 2025Q1

REPORT INFORMATION
  Report Type: Spontaneous
  Country: IT (occurrence: IT)
  Receive Date: 20250116
  Receipt Date: 20250301
  Transmission Date: 20250409
  Serious: Yes (Death)
  Sender: AUROBINDO
  Company Number: IT-MYLANLABS-2024M1115328

PATIENT
  Age: 81 Year
  Sex: Female

DRUGS (4)
  1. LORAZEPAM [Suspect]
     Active Substance: LORAZEPAM
     Indication: Product used for unknown indication
     Route: 065
  2. TAVOR (LORAZEPAM) [Suspect]
     Active Substance: LORAZEPAM
     Indication: Product used for unknown indication
     Route: 065
  3. TRAZODONE HYDROCHLORIDE [Suspect]
     Active Substance: TRAZODONE HYDROCHLORIDE
     Indication: Product used for unknown indication
     Route: 065
  4. XANAX [Suspect]
     Active Substance: ALPRAZOLAM
     Indication: Product used for unknown indication
     Dosage: 100 DOSAGE FORM, ONCE A DAY (100 DOSAGE FORM, QD (HIGH DOSES OF TRANQUILIZERS EVEN 100 DROPS OF XANA
     Route: 065

REACTIONS (8)
  - Intentional overdose [Fatal]
  - Prescription drug used without a prescription [Fatal]
  - Overdose [Fatal]
  - Victim of homicide [Fatal]
  - Drug diversion [Unknown]
  - Hypoglycaemia [Unknown]
  - Asthenia [Unknown]
  - Malaise [Unknown]
